FAERS Safety Report 6794896-6 (Version None)
Quarter: 2010Q2

REPORT INFORMATION
  Report Type: 
  Country: None (occurrence: None)
  Receive Date: 20100625
  Receipt Date: 20100316
  Transmission Date: 20101027
  Serious: Yes (Other)
  Sender: FDA-Public Use
  Company Number: US-BAYER-200922851NA

PATIENT
  Age: 40 Year
  Sex: Male
  Weight: 68 kg

DRUGS (18)
  1. MAGNEVIST [Suspect]
     Indication: NUCLEAR MAGNETIC RESONANCE IMAGING
     Dates: start: 20021002, end: 20021002
  2. OPTIMARK [Suspect]
     Indication: NUCLEAR MAGNETIC RESONANCE IMAGING
  3. OMNISCAN [Suspect]
     Indication: NUCLEAR MAGNETIC RESONANCE IMAGING
     Dates: start: 20011111, end: 20011111
  4. OMNISCAN [Suspect]
     Dates: start: 19990123, end: 19990123
  5. MULTIHANCE [Suspect]
     Indication: NUCLEAR MAGNETIC RESONANCE IMAGING
  6. PROHANCE [Suspect]
     Indication: NUCLEAR MAGNETIC RESONANCE IMAGING
  7. PHENERGAN [Concomitant]
  8. FOSAMAX [Concomitant]
  9. ALLOPURINOL [Concomitant]
  10. ULTRAM [Concomitant]
  11. ATENOLOL [Concomitant]
  12. PREDNISONE [Concomitant]
     Dosage: UNIT DOSE: 5 MG
     Route: 048
     Dates: start: 20020722, end: 20021024
  13. PREVACID [Concomitant]
     Dosage: QHS
     Route: 048
     Dates: start: 20021030, end: 20031029
  14. OMNIPAQUE 350 [Concomitant]
     Dosage: TOTAL DAILY DOSE: 125 ML
     Dates: start: 20010226, end: 20010226
  15. OMNIPAQUE 350 [Concomitant]
     Dosage: TOTAL DAILY DOSE: 100 ML
     Dates: start: 19991104, end: 19991104
  16. OMNIPAQUE 350 [Concomitant]
     Dosage: AS USED: 125 ML
     Dates: start: 20011105, end: 20011105
  17. OMNIPAQUE 350 [Concomitant]
     Dosage: AS USED: 125 ML
     Dates: start: 20011114, end: 20011114
  18. OPTIRAY 320 [Concomitant]
     Dosage: AS USED: 80 ML
     Dates: start: 20030312, end: 20030312

REACTIONS (25)
  - ABASIA [None]
  - ARTHRALGIA [None]
  - BACK PAIN [None]
  - EXTREMITY CONTRACTURE [None]
  - FATIGUE [None]
  - JOINT STIFFNESS [None]
  - KNEE DEFORMITY [None]
  - MOBILITY DECREASED [None]
  - MUSCLE ATROPHY [None]
  - MUSCLE SPASMS [None]
  - MUSCULAR WEAKNESS [None]
  - MUSCULOSKELETAL STIFFNESS [None]
  - NEPHROGENIC SYSTEMIC FIBROSIS [None]
  - OCULAR ICTERUS [None]
  - OEDEMA PERIPHERAL [None]
  - PAIN [None]
  - PAIN IN EXTREMITY [None]
  - PIGMENTATION DISORDER [None]
  - SKIN DISORDER [None]
  - SKIN FIBROSIS [None]
  - SKIN HYPERTROPHY [None]
  - SKIN INDURATION [None]
  - SKIN LESION [None]
  - SKIN NODULE [None]
  - SKIN PLAQUE [None]
